FAERS Safety Report 20449980 (Version 1)
Quarter: 2022Q1

REPORT INFORMATION
  Report Type: Spontaneous
  Country: US (occurrence: None)
  Receive Date: 20220208
  Receipt Date: 20220208
  Transmission Date: 20220423
  Serious: Yes (Other)
  Sender: FDA-Public Use
  Company Number: None

PATIENT
  Age: 63 Year
  Sex: Female
  Weight: 82 kg

DRUGS (1)
  1. CEFEPIME [Suspect]
     Active Substance: CEFEPIME HYDROCHLORIDE
     Indication: Osteomyelitis
     Dosage: FREQUENCY : TWICE A DAY;?
     Route: 042
     Dates: start: 20220113, end: 20220125

REACTIONS (1)
  - Neutropenia [None]

NARRATIVE: CASE EVENT DATE: 20220124
